FAERS Safety Report 14929519 (Version 1)
Quarter: 2018Q2

REPORT INFORMATION
  Report Type: Spontaneous
  Country: US (occurrence: US)
  Receive Date: 20180523
  Receipt Date: 20180523
  Transmission Date: 20180711
  Serious: No
  Sender: FDA-Public Use
  Company Number: US-TEIKOKU PHARMA USA-TPU2018-00292

PATIENT
  Sex: Male
  Weight: 104.42 kg

DRUGS (2)
  1. LIDOCAINE PATCH [Suspect]
     Active Substance: LIDOCAINE
     Indication: INTERVERTEBRAL DISC PROTRUSION
     Dosage: 1 TO 2 PATCHES A DAY
     Route: 061
  2. FLECTOR [Concomitant]
     Active Substance: DICLOFENAC EPOLAMINE
     Indication: INTERVERTEBRAL DISC PROTRUSION
     Dosage: 1 TO 2 PATCHES APPLED DAILY

REACTIONS (2)
  - Body height decreased [Not Recovered/Not Resolved]
  - Prescription drug used without a prescription [Unknown]
